FAERS Safety Report 4474491-4 (Version None)
Quarter: 2004Q4

REPORT INFORMATION
  Report Type: 
  Country: None (occurrence: None)
  Receive Date: 20041014
  Receipt Date: 20041008
  Transmission Date: 20050328
  Serious: Yes (Death)
  Sender: FDA-Public Use
  Company Number: DE-GLAXOSMITHKLINE-D0044910A

PATIENT
  Age: 52 Year
  Sex: Male
  Weight: 105 kg

DRUGS (6)
  1. AVANDAMET [Suspect]
     Dosage: 502MG TWICE PER DAY
     Route: 048
     Dates: start: 20040126
  2. METFORMIN HCL [Concomitant]
     Dosage: 850MG TWICE PER DAY
     Route: 048
     Dates: end: 20040125
  3. ACETYLSALICYLIC ACID [Concomitant]
     Route: 048
  4. ANTIHYPERTENSIVE (UNSPECIFIED) [Concomitant]
     Route: 065
  5. ANTI-HYPERLIPIDAEMIC (UNSPECIFIED) [Concomitant]
     Route: 065
  6. OTHER MEDICATIONS [Concomitant]
     Route: 065

REACTIONS (5)
  - CARDIAC ARREST [None]
  - CARDIAC FAILURE [None]
  - CONGESTIVE CARDIOMYOPATHY [None]
  - DYSPNOEA [None]
  - OEDEMA PERIPHERAL [None]
